FAERS Safety Report 9988696 (Version 2)
Quarter: 2014Q2

REPORT INFORMATION
  Report Type: Spontaneous
  Country: GR (occurrence: GR)
  Receive Date: 20140310
  Receipt Date: 20140506
  Transmission Date: 20141212
  Serious: Yes (Other)
  Sender: FDA-Public Use
  Company Number: GR-TEVA-467747ISR

PATIENT
  Age: 41 Year
  Sex: Female

DRUGS (1)
  1. TAMOXIFEN [Suspect]
     Indication: BREAST CANCER

REACTIONS (1)
  - Macular oedema [Recovered/Resolved]
